FAERS Safety Report 8589747-3 (Version None)
Quarter: 2012Q3

REPORT INFORMATION
  Report Type: 
  Country: None (occurrence: None)
  Receive Date: 20120813
  Receipt Date: 20120802
  Transmission Date: 20120928
  Serious: Yes (Other)
  Sender: FDA-Public Use
  Company Number: CN-ASTRAZENECA-2012SE55794

PATIENT
  Age: 16271 Day
  Sex: Female
  Weight: 50 kg

DRUGS (1)
  1. PULMICORT [Suspect]
     Indication: ILL-DEFINED DISORDER
     Route: 055
     Dates: start: 20090304, end: 20090304

REACTIONS (2)
  - CONVULSION [None]
  - PHARYNGEAL HYPOAESTHESIA [None]
